FAERS Safety Report 22204930 (Version 3)
Quarter: 2023Q2

REPORT INFORMATION
  Report Type: Report from Study
  Country: CO (occurrence: CO)
  Receive Date: 20230413
  Receipt Date: 20230421
  Transmission Date: 20230722
  Serious: Yes (Hospitalization, Other)
  Sender: FDA-Public Use
  Company Number: CO-SA-SAC20220429001348

PATIENT
  Age: 3 Year
  Sex: Male
  Weight: 14.6 kg

DRUGS (18)
  1. LARONIDASE [Suspect]
     Active Substance: LARONIDASE
     Indication: Mucopolysaccharidosis I
     Dosage: 2.9 MG, QW(3 VIALS WEEKLY)
     Route: 042
     Dates: start: 20200625
  2. LARONIDASE [Suspect]
     Active Substance: LARONIDASE
     Dosage: 26.25 MG, Q8D (3 VIALS OF 8.75 MG)
     Route: 041
     Dates: start: 20201216
  3. LARONIDASE [Suspect]
     Active Substance: LARONIDASE
     Dosage: 6 DF, QD(6 AMPOULES)
     Route: 042
     Dates: start: 20230321
  4. CARVEDILOL [Concomitant]
     Active Substance: CARVEDILOL
     Indication: Cardiac disorder
  5. CARVEDILOL [Concomitant]
     Active Substance: CARVEDILOL
     Dosage: 25 MG, BID
  6. FUROSEMIDE [Concomitant]
     Active Substance: FUROSEMIDE
     Indication: Cardiac disorder
  7. FUROSEMIDE [Concomitant]
     Active Substance: FUROSEMIDE
     Dosage: 10 MG, BID
  8. PREDNISOLONE [Concomitant]
     Active Substance: PREDNISOLONE
     Indication: Premedication
     Dosage: 2 DF(2CC 1 HOUR BEFORE TREATMENT)
  9. ACETAMINOPHEN [Concomitant]
     Active Substance: ACETAMINOPHEN
     Dosage: UNK, PRN
  10. IRON [Concomitant]
     Active Substance: IRON
     Dosage: UNK UNK, QD
  11. NUTRAMIGEN [Concomitant]
     Active Substance: AMINO ACIDS
     Indication: Pancreatic failure
     Dosage: UNK
  12. CALCIFEDIOL [Concomitant]
     Active Substance: CALCIFEDIOL
     Dosage: UNK
  13. VITAMIN D2 [Concomitant]
     Active Substance: ERGOCALCIFEROL
     Dosage: UNK
  14. VITAMIN D3 [Concomitant]
     Active Substance: CHOLECALCIFEROL
     Dosage: UNK
  15. VITAMIN E [Concomitant]
     Active Substance: .ALPHA.-TOCOPHEROL
     Dosage: UNK
  16. RETINOL [Concomitant]
     Active Substance: RETINOL
     Dosage: UNK
  17. CALCIUM CARBONATE\CHOLECALCIFEROL [Concomitant]
     Active Substance: CALCIUM CARBONATE\CHOLECALCIFEROL
     Dosage: UNK
  18. PEDIAVIT [ASCORBIC ACID;CALCIUM;CALCIUM PANTOTHENATE;CYANOCOBALAMIN;IR [Concomitant]
     Dosage: UNK

REACTIONS (7)
  - Seizure [Recovered/Resolved]
  - Vomiting [Recovered/Resolved]
  - Petechiae [Recovered/Resolved]
  - Somnolence [Recovered/Resolved]
  - Petechiae [Recovering/Resolving]
  - Vomiting [Recovered/Resolved]
  - Diarrhoea [Recovered/Resolved]

NARRATIVE: CASE EVENT DATE: 20220427
